FAERS Safety Report 17689633 (Version 1)
Quarter: 2020Q2

REPORT INFORMATION
  Report Type: Spontaneous
  Country: US (occurrence: US)
  Receive Date: 20200420
  Receipt Date: 20200420
  Transmission Date: 20200714
  Serious: Yes (Hospitalization)
  Sender: FDA-Public Use
  Company Number: None

PATIENT
  Age: 72 Year
  Sex: Male

DRUGS (1)
  1. WARFARIN (WARFARIN NA (EXELAN) 5MG TAB) [Suspect]
     Active Substance: WARFARIN SODIUM
     Indication: DEEP VEIN THROMBOSIS
     Dates: start: 20130417

REACTIONS (4)
  - Gastric haemorrhage [None]
  - Melaena [None]
  - International normalised ratio increased [None]
  - Myelodysplastic syndrome [None]

NARRATIVE: CASE EVENT DATE: 20200310
